FAERS Safety Report 5318732-X (Version None)
Quarter: 2007Q2

REPORT INFORMATION
  Report Type: 
  Country: None (occurrence: None)
  Receive Date: 20070503
  Receipt Date: 20070425
  Transmission Date: 20071010
  Serious: Yes (Death, Hospitalization)
  Sender: FDA-Public Use
  Company Number: 2007-02053

PATIENT
  Age: 46 Year
  Sex: Female

DRUGS (2)
  1. KETOROLAC TROMETHAMINE [Suspect]
     Indication: ABDOMINAL PAIN
     Dosage: SINGLE, INTRAMUSCULAR
     Route: 030
     Dates: start: 20040901
  2. DICLOFENAC POTASSIUM [Suspect]
     Indication: ARTHRITIS
     Dosage: 2 DOSES IN 24 HOURS, INTRAMUSCULAR
     Route: 030
     Dates: start: 20040901

REACTIONS (3)
  - MULTI-ORGAN FAILURE [None]
  - NECROTISING FASCIITIS [None]
  - POST PROCEDURAL COMPLICATION [None]
